FAERS Safety Report 5951337-6 (Version None)
Quarter: 2008Q4

REPORT INFORMATION
  Report Type: 
  Country: None (occurrence: None)
  Receive Date: 20081111
  Receipt Date: 20081111
  Transmission Date: 20090506
  Serious: Yes (Other)
  Sender: FDA-Public Use
  Company Number: None

PATIENT
  Age: 43 Year
  Sex: Female
  Weight: 61.2356 kg

DRUGS (1)
  1. CHANTIX [Suspect]
     Indication: SMOKING CESSATION THERAPY
     Dosage: 0.5MG STARTER PACK 2-3 WEEKS
     Dates: start: 20081009, end: 20081020

REACTIONS (5)
  - BULIMIA NERVOSA [None]
  - DEPRESSED MOOD [None]
  - HYPOAESTHESIA [None]
  - PSYCHOTIC DISORDER [None]
  - SELF-INJURIOUS IDEATION [None]
